FAERS Safety Report 24539636 (Version 1)
Quarter: 2024Q4

REPORT INFORMATION
  Report Type: Spontaneous
  Country: JP (occurrence: JP)
  Receive Date: 20241023
  Receipt Date: 20241023
  Transmission Date: 20250114
  Serious: Yes (Other)
  Sender: ABBVIE
  Company Number: JP-ABBVIE-5679676

PATIENT
  Age: 54 Year
  Sex: Female

DRUGS (1)
  1. FOSCARBIDOPA\FOSLEVODOPA [Suspect]
     Active Substance: FOSCARBIDOPA\FOSLEVODOPA
     Indication: Parkinson^s disease
     Dosage: 1224 ML/DAY
     Route: 058
     Dates: start: 20230926, end: 20240304

REACTIONS (2)
  - Hodgkin^s disease [Unknown]
  - On and off phenomenon [Unknown]
